FAERS Safety Report 18636111 (Version 1)
Quarter: 2020Q4

REPORT INFORMATION
  Report Type: Report from Study
  Country: US (occurrence: US)
  Receive Date: 20201218
  Receipt Date: 20201218
  Transmission Date: 20210114
  Serious: No
  Sender: FDA-Public Use
  Company Number: US-REGENERON PHARMACEUTICALS, INC.-2020-31768

PATIENT

DRUGS (3)
  1. EYLEA [Suspect]
     Active Substance: AFLIBERCEPT
     Indication: NEOVASCULAR AGE-RELATED MACULAR DEGENERATION
     Dosage: ONCE A MONTH
     Route: 031
     Dates: start: 201807, end: 201809
  2. EYLEA [Suspect]
     Active Substance: AFLIBERCEPT
     Dosage: ONCE A MONTH
     Route: 031
     Dates: start: 201808, end: 201808
  3. EYLEA [Suspect]
     Active Substance: AFLIBERCEPT
     Dosage: ONCE A MONTH
     Route: 031
     Dates: start: 201809, end: 201809

REACTIONS (1)
  - Drug ineffective [Unknown]
